FAERS Safety Report 5158360-2 (Version None)
Quarter: 2006Q4

REPORT INFORMATION
  Report Type: 
  Country: None (occurrence: None)
  Receive Date: 20061128
  Receipt Date: 20051219
  Transmission Date: 20070319
  Serious: No
  Sender: FDA-Public Use
  Company Number: US-GLAXOSMITHKLINE-A0586281A

PATIENT
  Age: 59 Year
  Sex: Female

DRUGS (15)
  1. LANOXIN [Suspect]
     Dosage: .125MG CYCLIC
     Route: 048
     Dates: start: 20050601
  2. DIOVAN [Suspect]
     Dates: start: 20050601
  3. DIOVAN [Concomitant]
  4. SYNTHROID [Concomitant]
  5. PRILOSEC [Concomitant]
  6. ZYLOPRIM [Concomitant]
  7. ASCORBIC ACID [Concomitant]
  8. VITAMIN E [Concomitant]
  9. HUMALOG [Concomitant]
  10. ZETIA [Concomitant]
  11. CALTRATE PLUS [Concomitant]
  12. TRICOR [Concomitant]
  13. VALIUM [Concomitant]
  14. NORGESIC FORTE [Concomitant]
  15. LANTUS [Concomitant]

REACTIONS (2)
  - BLOOD CHOLESTEROL INCREASED [None]
  - BLOOD TRIGLYCERIDES INCREASED [None]
